FAERS Safety Report 4728990-8 (Version None)
Quarter: 2005Q3

REPORT INFORMATION
  Report Type: 
  Country: None (occurrence: None)
  Receive Date: 20050729
  Receipt Date: 20041220
  Transmission Date: 20060218
  Serious: No
  Sender: FDA-Public Use
  Company Number: US-GLAXOSMITHKLINE-A0538023A

PATIENT
  Age: 80 Year
  Sex: Female

DRUGS (2)
  1. IMITREX [Suspect]
     Indication: MIGRAINE
     Dosage: 100MG AS REQUIRED
     Route: 048
     Dates: start: 20041211
  2. LEVOXYL [Concomitant]

REACTIONS (3)
  - DRUG INEFFECTIVE [None]
  - RASH [None]
  - URTICARIA [None]
